FAERS Safety Report 21747495 (Version 1)
Quarter: 2022Q4

REPORT INFORMATION
  Report Type: Spontaneous
  Country: US (occurrence: US)
  Receive Date: 20221219
  Receipt Date: 20221219
  Transmission Date: 20230113
  Serious: No
  Sender: FDA-Public Use
  Company Number: US-NOVEN PHARMACEUTICALS, INC.-2022-NOV-US000804

PATIENT
  Sex: Female

DRUGS (4)
  1. ESTRADIOL [Suspect]
     Active Substance: ESTRADIOL
     Indication: Menopausal symptoms
     Dosage: UNK
     Route: 062
     Dates: start: 20220822
  2. ESTRADIOL [Suspect]
     Active Substance: ESTRADIOL
     Dosage: UNK
     Route: 062
     Dates: start: 2020
  3. PROGESTERONE [Suspect]
     Active Substance: PROGESTERONE
     Indication: Menopausal symptoms
     Dosage: 100 MG, UNKNOWN
     Route: 065
     Dates: start: 20220822
  4. PROGESTERONE [Suspect]
     Active Substance: PROGESTERONE
     Dosage: 100 MG, UNKNOWN
     Route: 065
     Dates: start: 2020

REACTIONS (3)
  - Postmenopausal haemorrhage [Not Recovered/Not Resolved]
  - Muscle spasms [Not Recovered/Not Resolved]
  - Therapeutic product effect incomplete [Recovered/Resolved]

NARRATIVE: CASE EVENT DATE: 20200101
